FAERS Safety Report 16470886 (Version 1)
Quarter: 2019Q2

REPORT INFORMATION
  Report Type: Spontaneous
  Country: DE (occurrence: DE)
  Receive Date: 20190624
  Receipt Date: 20190624
  Transmission Date: 20190711
  Serious: Yes (Death, Life-Threatening, Hospitalization)
  Sender: FDA-Public Use
  Company Number: DE-ELI_LILLY_AND_COMPANY-DE201906008682

PATIENT
  Age: 67 Year
  Sex: Female

DRUGS (4)
  1. OLUMIANT [Suspect]
     Active Substance: BARICITINIB
     Indication: RHEUMATOID ARTHRITIS
     Dosage: 4 MG, DAILY
     Route: 048
     Dates: start: 20190413, end: 20190427
  2. OLMESARTAN AMLODIPIN MEPHA [Concomitant]
  3. DEKRISTOL [Concomitant]
     Active Substance: CHOLECALCIFEROL
  4. PREDNISOLON ^DLF^ [Concomitant]
     Active Substance: PREDNISOLONE
     Dosage: 1 MG, DAILY

REACTIONS (3)
  - Cellulitis [Fatal]
  - Beta haemolytic streptococcal infection [Fatal]
  - Septic shock [Fatal]

NARRATIVE: CASE EVENT DATE: 20190427
